FAERS Safety Report 7770486-3 (Version None)
Quarter: 2011Q3

REPORT INFORMATION
  Report Type: 
  Country: None (occurrence: None)
  Receive Date: 20110922
  Receipt Date: 20110426
  Transmission Date: 20111222
  Serious: No
  Sender: FDA-Public Use
  Company Number: US-ASTRAZENECA-2011SE24979

PATIENT
  Age: 55 Year
  Sex: Female
  Weight: 57.6 kg

DRUGS (10)
  1. SEROQUEL [Suspect]
     Route: 048
     Dates: start: 20090101
  2. TRAMADOL HCL [Concomitant]
  3. SEROQUEL [Suspect]
     Indication: SLEEP DISORDER
     Route: 048
     Dates: start: 20030101, end: 20090101
  4. KLONOPIN [Concomitant]
  5. CYMBALTA [Concomitant]
  6. ZOCOR [Concomitant]
     Indication: DYSLIPIDAEMIA
  7. LYRICA [Concomitant]
     Indication: FIBROMYALGIA
  8. PREMPRO [Concomitant]
     Indication: HORMONE REPLACEMENT THERAPY
  9. SEROQUEL [Suspect]
     Route: 048
     Dates: start: 20090101, end: 20090101
  10. XANAX [Concomitant]

REACTIONS (14)
  - HYPERHIDROSIS [None]
  - DYSURIA [None]
  - INSOMNIA [None]
  - VOMITING [None]
  - OFF LABEL USE [None]
  - FIBROMYALGIA [None]
  - DRUG INEFFECTIVE FOR UNAPPROVED INDICATION [None]
  - DEHYDRATION [None]
  - TREMOR [None]
  - DRUG DOSE OMISSION [None]
  - FEELING ABNORMAL [None]
  - RETCHING [None]
  - DYSPHAGIA [None]
  - OSTEOARTHRITIS [None]
